FAERS Safety Report 23171782 (Version 3)
Quarter: 2023Q4

REPORT INFORMATION
  Report Type: Report from Study
  Country: US (occurrence: US)
  Receive Date: 20231110
  Receipt Date: 20231207
  Transmission Date: 20240109
  Serious: Yes (Hospitalization)
  Sender: FDA-Public Use
  Company Number: US-ARGENX-2023-ARGX-US003183

PATIENT

DRUGS (1)
  1. VYVGART HYTRULO [Suspect]
     Active Substance: EFGARTIGIMOD ALFA\HYALURONIDASE-QVFC
     Indication: Product used for unknown indication
     Dosage: UNK
     Route: 058
     Dates: start: 20230919

REACTIONS (6)
  - Heart rate increased [Unknown]
  - Haematological infection [Unknown]
  - Asthenia [Unknown]
  - Urinary tract infection [Unknown]
  - Eye pain [Unknown]
  - Procedural headache [Unknown]

NARRATIVE: CASE EVENT DATE: 20230919
